FAERS Safety Report 10562431 (Version 1)
Quarter: 2014Q4

REPORT INFORMATION
  Report Type: Spontaneous
  Country: NL (occurrence: NL)
  Receive Date: 20141104
  Receipt Date: 20141104
  Transmission Date: 20150529
  Serious: Yes (Other)
  Sender: FDA-Public Use
  Company Number: PHHY2014NL143304

PATIENT
  Age: 83 Year
  Sex: Male

DRUGS (4)
  1. ACENOCOUMAROL [Suspect]
     Active Substance: ACENOCOUMAROL
     Indication: ANTICOAGULANT THERAPY
     Route: 065
  2. CLEXANE [Suspect]
     Active Substance: ENOXAPARIN SODIUM
     Indication: ANTICOAGULANT THERAPY
     Dosage: 0.8 ML, BID
     Route: 058
  3. DICLOFENAC [Suspect]
     Active Substance: DICLOFENAC
     Indication: ANTICOAGULANT THERAPY
     Dosage: 50 MG, TID
     Route: 065
  4. DICLOFENAC [Suspect]
     Active Substance: DICLOFENAC
     Indication: OFF LABEL USE

REACTIONS (3)
  - Haemorrhage [Unknown]
  - Haemoglobin decreased [Unknown]
  - Procedural haemorrhage [Unknown]
